FAERS Safety Report 12426831 (Version 9)
Quarter: 2018Q2

REPORT INFORMATION
  Report Type: Spontaneous
  Country: US (occurrence: US)
  Receive Date: 20160601
  Receipt Date: 20180426
  Transmission Date: 20180711
  Serious: Yes (Hospitalization)
  Sender: FDA-Public Use
  Company Number: US-ACTELION-A-US2016-136853

PATIENT
  Age: 68 Year
  Sex: Female
  Weight: 63.49 kg

DRUGS (4)
  1. PRADAXA [Concomitant]
     Active Substance: DABIGATRAN ETEXILATE MESYLATE
  2. SILDENAFIL. [Concomitant]
     Active Substance: SILDENAFIL
  3. VELETRI [Suspect]
     Active Substance: EPOPROSTENOL
     Dosage: UNK
     Route: 042
  4. VELETRI [Suspect]
     Active Substance: EPOPROSTENOL
     Indication: PULMONARY ARTERIAL HYPERTENSION
     Dosage: 44 NG/KG, PER MIN
     Route: 042
     Dates: start: 20130531

REACTIONS (20)
  - Asthenia [Unknown]
  - Dyspnoea at rest [Unknown]
  - Chest pain [Unknown]
  - Lung disorder [Unknown]
  - Sepsis [Unknown]
  - Diarrhoea [Unknown]
  - Device leakage [Unknown]
  - Device alarm issue [Unknown]
  - Nausea [Unknown]
  - Vomiting [Unknown]
  - Fluid retention [Unknown]
  - Haemorrhage [Unknown]
  - Dyspnoea exertional [Unknown]
  - Palpitations [Unknown]
  - Thrombosis in device [Unknown]
  - Oxygen saturation decreased [Unknown]
  - Dyspnoea [Unknown]
  - Catheter removal [Unknown]
  - Malaise [Unknown]
  - Tremor [Unknown]

NARRATIVE: CASE EVENT DATE: 201605
